FAERS Safety Report 5214048-0 (Version None)
Quarter: 2007Q1

REPORT INFORMATION
  Report Type: 
  Country: None (occurrence: None)
  Receive Date: 20070122
  Receipt Date: 20070112
  Transmission Date: 20070707
  Serious: Yes (Other)
  Sender: FDA-Public Use
  Company Number: PHEH2007US00864

PATIENT
  Sex: Male
  Weight: 68.027 kg

DRUGS (5)
  1. LAMISIL [Suspect]
     Indication: NAIL TINEA
     Dosage: 250 MG, QD
     Route: 048
     Dates: start: 20061113, end: 20061229
  2. SYNTHROID [Concomitant]
  3. LIPITOR [Concomitant]
  4. METOPROLOL SUCCINATE [Concomitant]
  5. KIONEX [Concomitant]
     Indication: BLOOD POTASSIUM INCREASED
     Dates: start: 20061215

REACTIONS (6)
  - BLOOD POTASSIUM INCREASED [None]
  - DYSGEUSIA [None]
  - HYPOGEUSIA [None]
  - NAUSEA [None]
  - ORAL INTAKE REDUCED [None]
  - WEIGHT DECREASED [None]
